FAERS Safety Report 19404906 (Version 2)
Quarter: 2021Q3

REPORT INFORMATION
  Report Type: Spontaneous
  Country: AU (occurrence: AU)
  Receive Date: 20210611
  Receipt Date: 20210825
  Transmission Date: 20211014
  Serious: No
  Sender: FDA-Public Use
  Company Number: AU-BAUSCH-BL-2021-019583

PATIENT
  Age: 35 Year
  Sex: Female

DRUGS (8)
  1. NAFAMOSTAT [Suspect]
     Active Substance: NAFAMOSTAT
     Indication: TYPE III IMMUNE COMPLEX MEDIATED REACTION
     Route: 065
  2. INSULIN [Suspect]
     Active Substance: INSULIN NOS
     Indication: TYPE III IMMUNE COMPLEX MEDIATED REACTION
     Route: 030
  3. INSULIN [Suspect]
     Active Substance: INSULIN NOS
     Dosage: 75 UNITS/DAY
     Route: 030
  4. AZATHIOPRINE. [Suspect]
     Active Substance: AZATHIOPRINE
     Indication: TYPE III IMMUNE COMPLEX MEDIATED REACTION
     Route: 065
  5. HYDROCORTISONE. [Suspect]
     Active Substance: HYDROCORTISONE
     Indication: TYPE III IMMUNE COMPLEX MEDIATED REACTION
     Route: 065
  6. INSULIN ASPART [Suspect]
     Active Substance: INSULIN ASPART
     Indication: TYPE III IMMUNE COMPLEX MEDIATED REACTION
     Route: 058
  7. BETAMETHASONE. [Suspect]
     Active Substance: BETAMETHASONE
     Indication: TYPE III IMMUNE COMPLEX MEDIATED REACTION
     Route: 061
  8. PREDNISOLONE. [Suspect]
     Active Substance: PREDNISOLONE
     Indication: TYPE III IMMUNE COMPLEX MEDIATED REACTION
     Route: 048

REACTIONS (1)
  - Drug ineffective [Unknown]
